FAERS Safety Report 8017766-4 (Version None)
Quarter: 2012Q1

REPORT INFORMATION
  Report Type: 
  Country: None (occurrence: None)
  Receive Date: 20120103
  Receipt Date: 20111228
  Transmission Date: 20120608
  Serious: No
  Sender: FDA-Public Use
  Company Number: US-PFIZER INC-2011285640

PATIENT
  Sex: Female

DRUGS (2)
  1. LYRICA [Suspect]
     Dosage: 100 MG, 2X/DAY
     Route: 048
  2. LYRICA [Suspect]
     Dosage: 50 MG, UNK
     Route: 048

REACTIONS (4)
  - MALAISE [None]
  - NERVOUSNESS [None]
  - TREMOR [None]
  - DRUG INEFFECTIVE [None]
